FAERS Safety Report 5882454-7 (Version None)
Quarter: 2008Q3

REPORT INFORMATION
  Report Type: 
  Country: None (occurrence: None)
  Receive Date: 20080913
  Receipt Date: 20080806
  Transmission Date: 20090109
  Serious: No
  Sender: FDA-Public Use
  Company Number: US-ABBOTT-08P-163-0468952-00

PATIENT
  Sex: Female
  Weight: 44.946 kg

DRUGS (4)
  1. HUMIRA [Suspect]
     Indication: RHEUMATOID ARTHRITIS
     Route: 058
     Dates: start: 20080111, end: 20080401
  2. FOLIC ACID [Concomitant]
     Indication: ANAEMIA
  3. FOLIC ACID [Concomitant]
  4. HYDROCODONE BITARTRATE [Concomitant]
     Indication: ARTHRALGIA

REACTIONS (7)
  - ACNE [None]
  - DERMATITIS INFECTED [None]
  - LOCALISED INFECTION [None]
  - NAIL INFECTION [None]
  - RASH [None]
  - SINUSITIS [None]
  - SKIN INFECTION [None]
